FAERS Safety Report 16903283 (Version 6)
Quarter: 2025Q1

REPORT INFORMATION
  Report Type: Spontaneous
  Country: US (occurrence: US)
  Receive Date: 20191010
  Receipt Date: 20250212
  Transmission Date: 20250409
  Serious: Yes (Hospitalization, Disabling, Other)
  Sender: PFIZER
  Company Number: US-PFIZER INC-2019431999

PATIENT
  Age: 59 Year
  Sex: Female

DRUGS (9)
  1. VANCOMYCIN HYDROCHLORIDE [Suspect]
     Active Substance: VANCOMYCIN HYDROCHLORIDE
     Indication: Clostridium difficile colitis
     Route: 042
     Dates: start: 20181118, end: 20181118
  2. VANCOMYCIN HYDROCHLORIDE [Suspect]
     Active Substance: VANCOMYCIN HYDROCHLORIDE
     Indication: Evidence based treatment
  3. VANCOMYCIN [Suspect]
     Active Substance: VANCOMYCIN
     Indication: Clostridium difficile colitis
     Dosage: 500 MG, 4X/DAY
     Route: 048
     Dates: start: 2018, end: 2018
  4. VANCOMYCIN [Suspect]
     Active Substance: VANCOMYCIN
     Indication: Clostridium difficile colitis
     Dosage: 500 MG, 4X/DAY
     Route: 054
     Dates: start: 2018, end: 20181125
  5. VANCOMYCIN [Suspect]
     Active Substance: VANCOMYCIN
     Dosage: 250 MG, 4X/DAY
     Route: 054
     Dates: start: 20181125, end: 20181202
  6. MEROPENEM [Concomitant]
     Active Substance: MEROPENEM
     Indication: Evidence based treatment
     Dates: start: 2018
  7. METRONIDAZOLE [Concomitant]
     Active Substance: METRONIDAZOLE
     Indication: Clostridium difficile colitis
     Route: 042
     Dates: start: 2018
  8. VORICONAZOLE [Concomitant]
     Active Substance: VORICONAZOLE
     Indication: Antifungal prophylaxis
  9. LEVOTHYROXINE [Concomitant]
     Active Substance: LEVOTHYROXINE
     Indication: Hypothyroidism

REACTIONS (10)
  - Cerebral infarction [Recovering/Resolving]
  - Quadriplegia [Recovering/Resolving]
  - Paralysis [Recovering/Resolving]
  - Renal impairment [Recovering/Resolving]
  - Hypoacusis [Recovering/Resolving]
  - Areflexia [Recovering/Resolving]
  - Toxicity to various agents [Recovering/Resolving]
  - Ototoxicity [Unknown]
  - Neurotoxicity [Unknown]
  - Nephropathy toxic [Unknown]

NARRATIVE: CASE EVENT DATE: 20180101
